FAERS Safety Report 25159886 (Version 1)
Quarter: 2025Q2

REPORT INFORMATION
  Report Type: Report from Study
  Country: US (occurrence: US)
  Receive Date: 20250404
  Receipt Date: 20250404
  Transmission Date: 20250716
  Serious: Yes (Other)
  Sender: ALEXION PHARMACEUTICALS
  Company Number: US-AstraZeneca-CH-00838185A

PATIENT

DRUGS (1)
  1. OSIMERTINIB [Suspect]
     Active Substance: OSIMERTINIB
     Route: 065

REACTIONS (9)
  - Skin discolouration [Unknown]
  - Increased tendency to bruise [Unknown]
  - Blood cholesterol increased [Unknown]
  - Lung disorder [Unknown]
  - Joint swelling [Unknown]
  - Neuropathy peripheral [Unknown]
  - Muscle spasms [Unknown]
  - Nail disorder [Unknown]
  - Anaemia [Unknown]
